FAERS Safety Report 6947240-5 (Version None)
Quarter: 2010Q3

REPORT INFORMATION
  Report Type: 
  Country: None (occurrence: None)
  Receive Date: 20100827
  Receipt Date: 20100820
  Transmission Date: 20110219
  Serious: Yes (Other)
  Sender: FDA-Public Use
  Company Number: US-AMGEN-QUU430407

PATIENT
  Age: 27 Year
  Sex: Female
  Weight: 164 kg

DRUGS (2)
  1. NPLATE [Suspect]
     Indication: IDIOPATHIC THROMBOCYTOPENIC PURPURA
     Route: 058
     Dates: start: 20100628
  2. PREDNISONE [Concomitant]
     Dates: start: 20100805, end: 20100810

REACTIONS (1)
  - THROMBOCYTOPENIA [None]
